FAERS Safety Report 25974203 (Version 1)
Quarter: 2025Q4

REPORT INFORMATION
  Report Type: Spontaneous
  Country: US (occurrence: None)
  Receive Date: 20251028
  Receipt Date: 20251028
  Transmission Date: 20260117
  Serious: Yes (Other)
  Sender: FDA-CTU
  Company Number: None

PATIENT
  Age: 73 Year
  Sex: Female

DRUGS (6)
  1. PROLIA [Suspect]
     Active Substance: DENOSUMAB
     Indication: Osteoporosis
     Dosage: 1INJECTION(S) EVERY SIX MONTHS SUBCUTANEOUS?
     Route: 058
     Dates: start: 20250509
  2. OMEGA 3 [Concomitant]
     Active Substance: CAPSAICIN
  3. VITAMIN D3+K2 [Concomitant]
  4. VITAMI9N C [Concomitant]
  5. VITAMINS FOR THE EYES [Concomitant]
  6. GINGER [Concomitant]
     Active Substance: GINGER

REACTIONS (6)
  - Arthralgia [None]
  - Pain in extremity [None]
  - Muscular weakness [None]
  - Gait disturbance [None]
  - Arthralgia [None]
  - Insomnia [None]

NARRATIVE: CASE EVENT DATE: 20250509
